FAERS Safety Report 11649602 (Version 1)
Quarter: 2015Q4

REPORT INFORMATION
  Report Type: Spontaneous
  Country: NL (occurrence: NL)
  Receive Date: 20151021
  Receipt Date: 20151021
  Transmission Date: 20160304
  Serious: Yes (Life-Threatening)
  Sender: FDA-Public Use
  Company Number: NL-BRISTOL-MYERS SQUIBB COMPANY-BMS-2015-068222

PATIENT
  Age: 56 Year
  Sex: Male
  Weight: 82 kg

DRUGS (3)
  1. PRAVASTATIN SODIUM. [Interacting]
     Active Substance: PRAVASTATIN SODIUM
     Indication: BLOOD CHOLESTEROL INCREASED
     Dosage: 40 MG, QD
     Route: 065
     Dates: start: 20150820, end: 20150822
  2. VASEXTEN [Suspect]
     Active Substance: BARNIDIPINE
     Indication: BLOOD PRESSURE INCREASED
     Dosage: 10 MG, QD
     Route: 065
     Dates: start: 20150902, end: 20150921
  3. CRESTOR [Interacting]
     Active Substance: ROSUVASTATIN CALCIUM
     Indication: BLOOD CHOLESTEROL INCREASED
     Dosage: 20 MG, QD
     Route: 065
     Dates: start: 20150908

REACTIONS (5)
  - Pruritus [Recovered/Resolved with Sequelae]
  - Drug interaction [Recovered/Resolved with Sequelae]
  - Insomnia [Recovered/Resolved with Sequelae]
  - Skin disorder [Recovered/Resolved with Sequelae]
  - Pain [Recovered/Resolved with Sequelae]

NARRATIVE: CASE EVENT DATE: 20150908
